FAERS Safety Report 6416186-3 (Version None)
Quarter: 2009Q4

REPORT INFORMATION
  Report Type: 
  Country: None (occurrence: None)
  Receive Date: 20091027
  Receipt Date: 20091019
  Transmission Date: 20100525
  Serious: Yes (Hospitalization, Other)
  Sender: FDA-Public Use
  Company Number: US-ELI_LILLY_AND_COMPANY-US200910004373

PATIENT
  Sex: Female

DRUGS (1)
  1. HUMULIN R [Suspect]
     Dates: start: 19990101

REACTIONS (6)
  - BLOOD GLUCOSE INCREASED [None]
  - CARDIAC FAILURE CONGESTIVE [None]
  - FALL [None]
  - MEDICATION ERROR [None]
  - PELVIC FRACTURE [None]
  - UPPER LIMB FRACTURE [None]
